FAERS Safety Report 12269175 (Version 1)
Quarter: 2016Q2

REPORT INFORMATION
  Report Type: Report from Study
  Country: FR (occurrence: FR)
  Receive Date: 20160414
  Receipt Date: 20160414
  Transmission Date: 20160815
  Serious: Yes (Hospitalization)
  Sender: FDA-Public Use
  Company Number: FR-GILEAD-2014-0105114

PATIENT
  Age: 24 Year
  Sex: Female
  Weight: 85 kg

DRUGS (8)
  1. GAVISCON                           /00237601/ [Concomitant]
     Active Substance: ALUMINUM HYDROXIDE\MAGNESIUM CARBONATE
     Indication: GASTROOESOPHAGEAL REFLUX DISEASE
     Dosage: 3 UNKNOWN, QD
     Route: 048
     Dates: start: 20140225, end: 201403
  2. CORTICOSTEROID NOS [Concomitant]
     Active Substance: CORTICOSTEROID NOS
     Dosage: UNK UNKNOWN, UNK
     Route: 065
     Dates: start: 20140225
  3. SPASFON                            /00765801/ [Concomitant]
     Active Substance: PHLOROGLUCINOL\1,3,5-TRIMETHOXYBENZENE
     Indication: ABDOMINAL PAIN
     Dosage: 80 MG, QD
     Route: 048
     Dates: start: 20140225, end: 201403
  4. TARDYFERON [Concomitant]
     Active Substance: FERROUS SULFATE\FOLIC ACID
     Indication: MINERAL SUPPLEMENTATION
     Dosage: 80 MG, QD
     Route: 048
     Dates: start: 20140225, end: 201403
  5. TENOFOVIR DISOPROXIL FUMARATE. [Suspect]
     Active Substance: TENOFOVIR DISOPROXIL FUMARATE
     Indication: HEPATITIS B
     Dosage: 245 MG, QD
     Route: 048
     Dates: start: 20130109
  6. DUPHALAC [Concomitant]
     Active Substance: LACTULOSE
     Indication: CONSTIPATION
     Dosage: 10 G, QD
     Route: 048
     Dates: start: 20140225, end: 201403
  7. SYNTOCINON [Concomitant]
     Active Substance: OXYTOCIN
     Indication: UTERINE CONTRACTIONS ABNORMAL
     Dosage: 5 IU, QD
     Route: 042
     Dates: start: 20140428, end: 20140428
  8. CLAMOXYL                           /00249601/ [Concomitant]
     Active Substance: AMOXICILLIN
     Indication: ANTIBIOTIC THERAPY
     Dosage: 2 G, QD
     Route: 065
     Dates: start: 20140427, end: 20140427

REACTIONS (1)
  - Exposure during pregnancy [Recovered/Resolved]
